FAERS Safety Report 7577228-5 (Version None)
Quarter: 2011Q2

REPORT INFORMATION
  Report Type: 
  Country: None (occurrence: None)
  Receive Date: 20110628
  Receipt Date: 20110620
  Transmission Date: 20111010
  Serious: Yes (Death, Hospitalization, Other)
  Sender: FDA-Public Use
  Company Number: GB-BAYER-2011-054321

PATIENT
  Age: 91 Year
  Sex: Female

DRUGS (3)
  1. LEVOTHYROXINE SODIUM [Concomitant]
  2. NAPROXEN SODIUM [Suspect]
     Indication: RENAL FAILURE
     Dosage: 500 MG, BID
     Route: 048
  3. ACETYLSALICYLIC ACID SRT [Suspect]
     Dosage: DAILY DOSE 75 MG

REACTIONS (2)
  - PERITONITIS [None]
  - GASTROINTESTINAL ULCER [None]
